FAERS Safety Report 6137667-6 (Version None)
Quarter: 2009Q1

REPORT INFORMATION
  Report Type: 
  Country: None (occurrence: None)
  Receive Date: 20090327
  Receipt Date: 20090316
  Transmission Date: 20090719
  Serious: Yes (Other)
  Sender: FDA-Public Use
  Company Number: 2009AP001110

PATIENT
  Age: 68 Year
  Sex: Female

DRUGS (9)
  1. METFORMIN HCL [Suspect]
  2. HYDROCHLOROTHIAZIDE [Concomitant]
  3. ACETYLSALICYLIC ACID SRT [Concomitant]
  4. OMEPRAZOLE [Concomitant]
  5. FUROSEMIDE [Concomitant]
  6. EZETIMIBE [Concomitant]
  7. SIMVASTATIN [Concomitant]
  8. NIFEDIPINE [Concomitant]
  9. INSULIN [Concomitant]

REACTIONS (13)
  - ACID-BASE BALANCE DISORDER MIXED [None]
  - ALKALOSIS HYPOCHLORAEMIC [None]
  - ANION GAP INCREASED [None]
  - BACK PAIN [None]
  - BLOOD GLUCOSE DECREASED [None]
  - BLOOD POTASSIUM INCREASED [None]
  - BLOOD SODIUM DECREASED [None]
  - GASTROENTERITIS [None]
  - HAEMODIALYSIS [None]
  - HAEMOGLOBIN DECREASED [None]
  - LACTIC ACIDOSIS [None]
  - RENAL FAILURE ACUTE [None]
  - SEPSIS [None]
